FAERS Safety Report 15865489 (Version 1)
Quarter: 2019Q1

REPORT INFORMATION
  Report Type: Spontaneous
  Country: US (occurrence: US)
  Receive Date: 20190125
  Receipt Date: 20190125
  Transmission Date: 20190417
  Serious: No
  Sender: FDA-Public Use
  Company Number: US-CELGENEUS-USA-20190104749

PATIENT
  Sex: Female
  Weight: 140 kg

DRUGS (1)
  1. REVLIMID [Suspect]
     Active Substance: LENALIDOMIDE
     Indication: PLASMA CELL MYELOMA
     Dosage: 5 MILLIGRAM.
     Route: 048
     Dates: start: 20181123

REACTIONS (2)
  - Balance disorder [Recovered/Resolved with Sequelae]
  - Tremor [Recovered/Resolved with Sequelae]
